FAERS Safety Report 17840713 (Version 1)
Quarter: 2020Q2

REPORT INFORMATION
  Report Type: Spontaneous
  Country: GB (occurrence: GB)
  Receive Date: 20200529
  Receipt Date: 20200529
  Transmission Date: 20200714
  Serious: Yes (Hospitalization, Other)
  Sender: FDA-Public Use
  Company Number: GB-OTSUKA-2020_013018

PATIENT
  Age: 59 Year
  Sex: Male

DRUGS (25)
  1. CLOPIXOL [Suspect]
     Active Substance: ZUCLOPENTHIXOL
     Dosage: 400 MILLIGRAM, BIWEEKLY
     Route: 065
     Dates: start: 20040601, end: 20041018
  2. RISPERIDONE. [Suspect]
     Active Substance: RISPERIDONE
     Dosage: 2 MG, BID
     Route: 065
  3. CLOZARIL [Suspect]
     Active Substance: CLOZAPINE
     Dosage: 100 MG, QD (AM)
     Route: 065
  4. OLANZAPINE. [Suspect]
     Active Substance: OLANZAPINE
     Dosage: 10 MG, UNK
     Route: 065
  5. CHLORPROMAZINE. [Suspect]
     Active Substance: CHLORPROMAZINE
     Indication: PRODUCT USED FOR UNKNOWN INDICATION
     Dosage: 75 MG, UNK
     Route: 065
  6. LITHIUM. [Suspect]
     Active Substance: LITHIUM
     Indication: PRODUCT USED FOR UNKNOWN INDICATION
     Dosage: 1 GRAM
     Route: 065
  7. CLOZARIL [Suspect]
     Active Substance: CLOZAPINE
     Dosage: 200 MG, BID
     Route: 065
  8. OLANZAPINE. [Suspect]
     Active Substance: OLANZAPINE
     Dosage: 15 MG, UNK
     Route: 065
     Dates: start: 20040217
  9. CLOPIXOL [Suspect]
     Active Substance: ZUCLOPENTHIXOL
     Dosage: 300 MILLIGRAM, WEEKLY
     Route: 030
     Dates: start: 20091009
  10. CLOZARIL [Suspect]
     Active Substance: CLOZAPINE
     Dosage: 300 MG, QD (PM)
     Route: 065
  11. CLOZARIL [Suspect]
     Active Substance: CLOZAPINE
     Dosage: UNK
     Route: 048
     Dates: start: 20100823
  12. CLOPIXOL [Suspect]
     Active Substance: ZUCLOPENTHIXOL
     Indication: PRODUCT USED FOR UNKNOWN INDICATION
     Dosage: 400 MILLIGRAM, BIWEEKLY
     Route: 065
     Dates: start: 20030204, end: 20040217
  13. RISPERIDONE. [Suspect]
     Active Substance: RISPERIDONE
     Indication: PRODUCT USED FOR UNKNOWN INDICATION
     Dosage: 3 MG, BID
     Route: 065
  14. CLOZARIL [Suspect]
     Active Substance: CLOZAPINE
     Dosage: UNK
     Route: 048
     Dates: start: 20191209, end: 20191223
  15. OLANZAPINE. [Suspect]
     Active Substance: OLANZAPINE
     Dosage: 15 MG, UNK
     Route: 065
     Dates: start: 20060704
  16. LORAZEPAM. [Suspect]
     Active Substance: LORAZEPAM
     Indication: PRODUCT USED FOR UNKNOWN INDICATION
     Dosage: 1 MG, UNK
     Route: 048
  17. ARIPIPRAZOLE. [Suspect]
     Active Substance: ARIPIPRAZOLE
     Indication: PRODUCT USED FOR UNKNOWN INDICATION
     Dosage: 5 MILLIGRAM
     Route: 065
  18. HALOPERIDOL. [Suspect]
     Active Substance: HALOPERIDOL
     Indication: PRODUCT USED FOR UNKNOWN INDICATION
     Dosage: 5 MG, BID
     Route: 065
  19. CLOPIXOL [Suspect]
     Active Substance: ZUCLOPENTHIXOL
     Dosage: UNK
     Route: 065
  20. CLOZARIL [Suspect]
     Active Substance: CLOZAPINE
     Dosage: 275 MG, QD (PM)
     Route: 065
  21. OLANZAPINE. [Suspect]
     Active Substance: OLANZAPINE
     Indication: PRODUCT USED FOR UNKNOWN INDICATION
     Dosage: 2.5 MG, UNK
     Route: 065
     Dates: start: 20080823
  22. CLOPIXOL [Suspect]
     Active Substance: ZUCLOPENTHIXOL
     Dosage: 400 MILLIGRAM, WEEKLY
     Route: 065
     Dates: start: 20040217, end: 20040601
  23. RISPERIDONE. [Suspect]
     Active Substance: RISPERIDONE
     Dosage: 1 GRAM, QD
     Route: 065
  24. CLOZARIL [Suspect]
     Active Substance: CLOZAPINE
     Indication: SCHIZOPHRENIA
     Dosage: UNK, QD (AM)
     Route: 065
     Dates: start: 2011
  25. CLOZARIL [Suspect]
     Active Substance: CLOZAPINE
     Dosage: 50 MG, QD (MIDDAY)
     Route: 065

REACTIONS (10)
  - Leukopenia [Recovered/Resolved]
  - Platelet count decreased [Recovered/Resolved]
  - Neutropenia [Recovered/Resolved]
  - Delusion of grandeur [Unknown]
  - Fatigue [Unknown]
  - Affective disorder [Recovered/Resolved]
  - Extrapyramidal disorder [Unknown]
  - Hallucination, auditory [Unknown]
  - Psychotic disorder [Recovered/Resolved]
  - Schizophrenia [Not Recovered/Not Resolved]

NARRATIVE: CASE EVENT DATE: 20191126
